FAERS Safety Report 8524668-3 (Version None)
Quarter: 2012Q3

REPORT INFORMATION
  Report Type: 
  Country: None (occurrence: None)
  Receive Date: 20120720
  Receipt Date: 20120706
  Transmission Date: 20120928
  Serious: Yes (Death, Life-Threatening)
  Sender: FDA-Public Use
  Company Number: JP-ROCHE-1086424

PATIENT
  Sex: Female
  Weight: 57 kg

DRUGS (18)
  1. PEGASYS [Suspect]
     Route: 058
     Dates: start: 20111222, end: 20120217
  2. NEOPHAGEN [Concomitant]
     Route: 042
     Dates: end: 20120419
  3. NICOTINAMIDE [Concomitant]
     Route: 048
     Dates: end: 20120323
  4. PROMACTA [Concomitant]
     Indication: GASTROOESOPHAGEAL REFLUX DISEASE
     Route: 048
     Dates: start: 20091211, end: 20120322
  5. CLINORIL [Concomitant]
     Indication: PROPHYLAXIS
     Route: 048
     Dates: start: 20110311, end: 20120323
  6. URSO 250 [Concomitant]
     Indication: HEPATITIS C
     Route: 048
     Dates: end: 20120323
  7. CANDESARTAN CILEXETIL [Concomitant]
     Indication: HYPERTENSION
     Route: 048
     Dates: end: 20120323
  8. PEGASYS [Suspect]
     Indication: HEPATITIS C
     Route: 058
     Dates: start: 20110311, end: 20110401
  9. MEILAX [Concomitant]
     Indication: INSOMNIA
     Route: 048
     Dates: start: 20101008, end: 20110301
  10. PEGASYS [Suspect]
     Route: 058
     Dates: start: 20120302, end: 20120302
  11. FAMOTIDINE [Concomitant]
     Indication: PROPHYLAXIS
     Route: 048
     Dates: start: 20110311, end: 20120323
  12. PEGASYS [Suspect]
     Route: 058
     Dates: start: 20110428, end: 20110916
  13. PEGASYS [Suspect]
     Route: 058
     Dates: start: 20110930, end: 20111014
  14. NEOPHAGEN [Concomitant]
     Indication: HEPATITIS C
     Route: 048
     Dates: start: 20100402, end: 20110707
  15. AMLODIPINE [Concomitant]
     Indication: HYPERTENSION
     Route: 048
     Dates: end: 20120323
  16. MANIDIPINE HYDROCHLORIDE [Concomitant]
     Indication: HYPERTENSION
     Route: 048
     Dates: end: 20120323
  17. PEGASYS [Suspect]
     Route: 058
     Dates: start: 20110415, end: 20110415
  18. PEGASYS [Suspect]
     Route: 058
     Dates: start: 20111028, end: 20111209

REACTIONS (3)
  - MULTI-ORGAN FAILURE [None]
  - INTERSTITIAL LUNG DISEASE [None]
  - PNEUMOCYSTIS JIROVECI PNEUMONIA [None]
